FAERS Safety Report 8135640-X (Version None)
Quarter: 2012Q1

REPORT INFORMATION
  Report Type: 
  Country: None (occurrence: None)
  Receive Date: 20120210
  Receipt Date: 20110428
  Transmission Date: 20120608
  Serious: No
  Sender: FDA-Public Use
  Company Number: 2011GR_BP6974

PATIENT
  Age: 87 Year
  Sex: Male

DRUGS (1)
  1. FINASTERIDE [Suspect]
     Indication: PRODUCT USED FOR UNKNOWN INDICATION
     Dosage: 5 MG(5 MG, 1 IN 1 DAY)

REACTIONS (3)
  - RHINORRHOEA [None]
  - SWELLING FACE [None]
  - DYSPNOEA [None]
